FAERS Safety Report 24910850 (Version 3)
Quarter: 2025Q3

REPORT INFORMATION
  Report Type: Other
  Country: EU (occurrence: EU)
  Receive Date: 20250131
  Receipt Date: 20250819
  Transmission Date: 20251020
  Serious: Yes (Other)
  Sender: SERVIER
  Company Number: EU-SERVIER-S25001000

PATIENT

DRUGS (7)
  1. IVOSIDENIB [Suspect]
     Active Substance: IVOSIDENIB
     Indication: Acute myeloid leukaemia
     Dosage: 250 MG, QD
     Route: 048
  2. AZACITIDINE [Suspect]
     Active Substance: AZACITIDINE
     Indication: Acute myeloid leukaemia
     Route: 065
  3. POSACONAZOLE [Concomitant]
     Active Substance: POSACONAZOLE
     Indication: Antifungal prophylaxis
     Route: 065
  4. PREDNISOLONE [Concomitant]
     Active Substance: PREDNISOLONE
     Indication: Crohn^s disease
     Route: 065
  5. PREDNISOLONE [Concomitant]
     Active Substance: PREDNISOLONE
     Indication: Arthritis
  6. ADALIMUMAB [Concomitant]
     Active Substance: ADALIMUMAB
     Indication: Crohn^s disease
     Route: 065
  7. ADALIMUMAB [Concomitant]
     Active Substance: ADALIMUMAB
     Indication: Arthritis

REACTIONS (3)
  - Pancreatitis [Recovered/Resolved]
  - Nausea [Recovering/Resolving]
  - Vomiting [Recovering/Resolving]
